FAERS Safety Report 18623814 (Version 2)
Quarter: 2021Q1

REPORT INFORMATION
  Report Type: Spontaneous
  Country: TR (occurrence: TR)
  Receive Date: 20201216
  Receipt Date: 20210122
  Transmission Date: 20210419
  Serious: Yes (Other)
  Sender: FDA-Public Use
  Company Number: NVSC2020TR329849

PATIENT
  Age: 83 Year
  Sex: Male

DRUGS (1)
  1. AZARGA [Suspect]
     Active Substance: BRINZOLAMIDE\TIMOLOL MALEATE
     Indication: GLAUCOMA
     Dosage: 1 DRP, BID (MORNING AND EVENING)
     Route: 047

REACTIONS (3)
  - Cataract [Unknown]
  - Poor quality product administered [Unknown]
  - Product colour issue [Unknown]
